FAERS Safety Report 6382724-2 (Version None)
Quarter: 2009Q3

REPORT INFORMATION
  Report Type: 
  Country: None (occurrence: None)
  Receive Date: 20090928
  Receipt Date: 20090928
  Transmission Date: 20100115
  Serious: Yes (Death)
  Sender: FDA-Public Use
  Company Number: None

PATIENT
  Age: 28 Year
  Sex: Male
  Weight: 110 kg

DRUGS (1)
  1. FENTANYL TRANSDERMAL SYSTEM [Suspect]

REACTIONS (1)
  - DEATH [None]
